FAERS Safety Report 9392167 (Version 2)
Quarter: 2013Q3

REPORT INFORMATION
  Report Type: Report from Study
  Country: JP (occurrence: JP)
  Receive Date: 20130710
  Receipt Date: 20130924
  Transmission Date: 20140515
  Serious: Yes (Death, Life-Threatening, Hospitalization, Disabling, Other)
  Sender: FDA-Public Use
  Company Number: JP-009507513-1307JPN004446

PATIENT
  Age: 63 Year
  Sex: Male

DRUGS (35)
  1. ZOLINZA CAPSULES 100MG [Suspect]
     Indication: MYCOSIS FUNGOIDES
     Dosage: 400 MG, QD
     Route: 048
     Dates: start: 20120525, end: 20120609
  2. ZOLINZA CAPSULES 100MG [Suspect]
     Dosage: 300 MG, QD
     Route: 048
     Dates: start: 20120619, end: 20120703
  3. ZOLINZA CAPSULES 100MG [Suspect]
     Dosage: UNK
  4. ARTIST [Concomitant]
     Indication: CARDIAC FAILURE
     Dosage: 2.5 MG, BID
     Route: 048
     Dates: end: 20130703
  5. PREDNISOLONE [Concomitant]
     Indication: INTERSTITIAL LUNG DISEASE
     Dosage: 12.5 MG, QD
     Route: 048
     Dates: end: 20120611
  6. PREDNISOLONE [Concomitant]
     Dosage: 10 MG, QD
     Route: 048
     Dates: start: 20120612, end: 20120703
  7. BAKTAR [Concomitant]
     Indication: PROPHYLAXIS
     Dosage: 1 DF, QD
     Route: 048
     Dates: end: 20120703
  8. OMEPRAL [Concomitant]
     Indication: PROPHYLAXIS
     Dosage: 10 MG, BID
     Route: 048
     Dates: end: 20120703
  9. OMEPRAL [Concomitant]
     Dosage: 10 MG, BID
     Route: 048
     Dates: start: 20120704, end: 20120710
  10. METHYCOBAL [Concomitant]
     Indication: HYPOAESTHESIA
     Dosage: 500 MICROGRAM, TID
     Route: 048
     Dates: end: 20120619
  11. GOSHA-JINKI-GAN [Concomitant]
     Indication: HYPOAESTHESIA
     Dosage: 2.5 G, TID
     Route: 048
     Dates: end: 20120609
  12. ONEALFA [Concomitant]
     Indication: PROPHYLAXIS
     Dosage: 1 MICROGRAM, QD
     Route: 048
     Dates: end: 20120703
  13. ALLEGRA [Concomitant]
     Indication: MYCOSIS FUNGOIDES
     Dosage: 60 MG, BID
     Route: 048
     Dates: end: 20120619
  14. MINOMYCIN [Concomitant]
     Indication: SKIN INFECTION
     Dosage: 100 MG, BID
     Route: 048
     Dates: start: 20120601, end: 20120608
  15. LOXONIN [Concomitant]
     Indication: PAIN
     Dosage: 60 MG, UNK
     Route: 048
     Dates: end: 20120701
  16. OXYCONTIN [Concomitant]
     Indication: PAIN
     Dosage: 10 MG, BID
     Route: 048
     Dates: end: 20120703
  17. OXINORM (OXYCODONE HYDROCHLORIDE) [Concomitant]
     Indication: PAIN
     Dosage: 2.5 MG, UNK
     Route: 048
     Dates: end: 20120628
  18. PRIMPERAN [Concomitant]
     Indication: NAUSEA
     Dosage: 5 MG, TID
     Route: 048
     Dates: start: 20120601, end: 20120619
  19. GLUFAST [Concomitant]
     Indication: DIABETES MELLITUS
     Dosage: 10 MG, TID
     Route: 048
     Dates: end: 20120703
  20. MAGLAX [Concomitant]
     Indication: CONSTIPATION
     Dosage: 330 MG, UNK
     Route: 048
     Dates: start: 20120625, end: 20120713
  21. NOVAMIN (PROCHLORPERAZINE MALEATE) [Concomitant]
     Indication: NAUSEA
     Dosage: 5 MG, TID
     Dates: start: 20120609, end: 20120619
  22. LENDORMIN D [Concomitant]
     Indication: INSOMNIA
     Dosage: 25 MG, QD
     Route: 048
     Dates: start: 20120614
  23. AMPICILLIN SODIUM (+) SULBACTAM SODIUM [Concomitant]
     Indication: SKIN INFECTION
     Dosage: 1.5 G, TID
     Route: 051
     Dates: start: 20120604, end: 20120607
  24. MEROPENEM [Concomitant]
     Indication: SKIN INFECTION
     Dosage: 0.5 G, TID
     Route: 051
     Dates: start: 20120608, end: 20120611
  25. MEROPENEM [Concomitant]
     Dosage: 0.5 G, BID
     Route: 051
     Dates: start: 20120612, end: 20120618
  26. MEROPENEM [Concomitant]
     Dosage: 0.5 G, BID
     Route: 051
     Dates: start: 20120703, end: 20120710
  27. HUMULIN N [Concomitant]
     Indication: DIABETES MELLITUS
     Dosage: DAILY DOSAGE UNKNOWN
     Route: 051
     Dates: start: 20120604, end: 20120704
  28. ALLOID G [Concomitant]
     Indication: GASTRITIS
     Dosage: 20 ML, TID
     Route: 048
     Dates: start: 20120622
  29. VOLTAREN [Concomitant]
     Indication: PAIN
     Dosage: 25 MG, UNK
     Route: 048
     Dates: start: 20120629, end: 20120629
  30. ANHIBA [Concomitant]
     Indication: PAIN
     Dosage: 400 MG, UNK
     Route: 054
     Dates: start: 20120703, end: 20120703
  31. HUMULIN R [Concomitant]
     Indication: DIABETES MELLITUS
     Dosage: DAILY DOSAGE UNKNOWN
     Route: 051
     Dates: start: 20120704, end: 20120713
  32. PREDONINE [Concomitant]
     Indication: INTERSTITIAL LUNG DISEASE
     Dosage: 20 MG, QD
     Route: 051
     Dates: start: 20120704, end: 20120713
  33. VITAMEDIN INTRAVENOUS [Concomitant]
     Indication: DYSPHAGIA
     Dosage: 1 DF, QD
     Route: 041
     Dates: start: 20120704, end: 20120709
  34. MORPHINE HYDROCHLORIDE [Concomitant]
     Indication: PAIN
     Dosage: DAILY DOSAGE UNKNOWN
     Route: 041
     Dates: start: 20120704, end: 20120714
  35. ROPION [Concomitant]
     Indication: PYREXIA
     Dosage: 50 MG, QD
     Route: 051
     Dates: start: 20120705, end: 20120705

REACTIONS (9)
  - Embolism [Fatal]
  - Pyrexia [Recovering/Resolving]
  - Platelet count decreased [Recovered/Resolved]
  - Renal impairment [Recovering/Resolving]
  - Renal impairment [Recovering/Resolving]
  - Platelet count decreased [Recovering/Resolving]
  - C-reactive protein increased [Recovering/Resolving]
  - Anaemia [Not Recovered/Not Resolved]
  - Pyrexia [Recovering/Resolving]
